FAERS Safety Report 7552398-3 (Version None)
Quarter: 2011Q2

REPORT INFORMATION
  Report Type: 
  Country: None (occurrence: None)
  Receive Date: 20110616
  Receipt Date: 20110517
  Transmission Date: 20111010
  Serious: Yes (Other)
  Sender: FDA-Public Use
  Company Number: PHHY2011BR43473

PATIENT
  Age: 72 Year

DRUGS (2)
  1. RASILEZ AMLO [Suspect]
     Dosage: 10 MG, QD
  2. SPIRONOLACTONE [Concomitant]
     Dosage: 25 MG, QD

REACTIONS (1)
  - MICROALBUMINURIA [None]
